FAERS Safety Report 9498638 (Version 2)
Quarter: 2013Q4

REPORT INFORMATION
  Report Type: Spontaneous
  Country: US (occurrence: US)
  Receive Date: 20130904
  Receipt Date: 20131126
  Transmission Date: 20140711
  Serious: No
  Sender: FDA-Public Use
  Company Number: US-PFIZER INC-2013252724

PATIENT
  Age: 68 Year
  Sex: Male
  Weight: 165 kg

DRUGS (3)
  1. LYRICA [Suspect]
     Indication: DIABETIC NEUROPATHY
     Dosage: 100 MG, 3X/DAY
     Route: 048
  2. LYRICA [Suspect]
     Indication: FIBROMYALGIA
  3. CYMBALTA [Concomitant]
     Dosage: UNK

REACTIONS (3)
  - Neck pain [Unknown]
  - Headache [Unknown]
  - Blood glucose increased [Unknown]
